FAERS Safety Report 5386281-9 (Version None)
Quarter: 2007Q3

REPORT INFORMATION
  Report Type: 
  Country: None (occurrence: None)
  Receive Date: 20070713
  Receipt Date: 20070702
  Transmission Date: 20080115
  Serious: Yes (Other)
  Sender: FDA-Public Use
  Company Number: PHRM2007FR01726

PATIENT
  Sex: Female
  Weight: 50 kg

DRUGS (2)
  1. ZOMETA [Suspect]
     Indication: METASTASES TO BONE
     Dosage: 4 MG, QMO
     Route: 042
     Dates: start: 20060601, end: 20061101
  2. ETOPOSIDE [Concomitant]

REACTIONS (2)
  - ARTHRITIS [None]
  - BONE DENSITY INCREASED [None]
